FAERS Safety Report 5276519-0 (Version None)
Quarter: 2007Q1

REPORT INFORMATION
  Report Type: 
  Country: None (occurrence: None)
  Receive Date: 20061213
  Receipt Date: 20031223
  Transmission Date: 20070707
  Serious: No
  Sender: FDA-Public Use
  Company Number: 2003UW15294

PATIENT
  Age: 19 Year
  Sex: Male
  Weight: 143.3367 kg

DRUGS (10)
  1. SEROQUEL [Suspect]
     Indication: AGITATION
     Dosage: 300 MG QD PO
     Route: 048
     Dates: start: 20030901
  2. SEROQUEL [Suspect]
     Indication: ANXIETY
     Dosage: 300 MG QD PO
     Route: 048
     Dates: start: 20030901
  3. CONCERTA [Concomitant]
  4. LEXAPRO [Concomitant]
  5. DEPAKOTE [Concomitant]
  6. CLONIDINE [Concomitant]
  7. GLUCOPHATE ^ABIC^ [Concomitant]
  8. GLYBURIDE [Concomitant]
  9. PROTONIX [Concomitant]
  10. CARAFATE [Concomitant]

REACTIONS (1)
  - GASTROINTESTINAL PAIN [None]
